FAERS Safety Report 11308048 (Version 1)
Quarter: 2015Q3

REPORT INFORMATION
  Report Type: Spontaneous
  Country: US (occurrence: US)
  Receive Date: 20150724
  Receipt Date: 20150724
  Transmission Date: 20151125
  Serious: No
  Sender: FDA-Public Use
  Company Number: US-ASTRAZENECA-2015SE68534

PATIENT
  Sex: Male
  Weight: 111.1 kg

DRUGS (8)
  1. SIMVASTATIN. [Concomitant]
     Active Substance: SIMVASTATIN
     Route: 048
  2. PINDOLOL. [Concomitant]
     Active Substance: PINDOLOL
     Route: 048
  3. AMARYL [Concomitant]
     Active Substance: GLIMEPIRIDE
     Route: 048
  4. FARXIGA [Suspect]
     Active Substance: DAPAGLIFLOZIN PROPANEDIOL
     Route: 048
  5. BYDUREON [Suspect]
     Active Substance: EXENATIDE
     Route: 058
  6. EXFORGE [Concomitant]
     Active Substance: AMLODIPINE BESYLATE\VALSARTAN
     Route: 048
  7. METFORMIN [Concomitant]
     Active Substance: METFORMIN HYDROCHLORIDE
     Route: 048
  8. STARLIX [Concomitant]
     Active Substance: NATEGLINIDE
     Route: 048

REACTIONS (3)
  - Glycosylated haemoglobin increased [Unknown]
  - Underdose [Unknown]
  - Product quality issue [Unknown]
